FAERS Safety Report 6565965-0 (Version None)
Quarter: 2010Q1

REPORT INFORMATION
  Report Type: 
  Country: None (occurrence: None)
  Receive Date: 20100129
  Receipt Date: 20100129
  Transmission Date: 20100710
  Serious: Yes (Hospitalization)
  Sender: FDA-Public Use
  Company Number: None

PATIENT
  Age: 60 Year
  Sex: Male
  Weight: 80 kg

DRUGS (2)
  1. FENTANYL-100 [Suspect]
     Indication: PAIN
     Dosage: 1 OTHER TOP
     Route: 061
     Dates: end: 20100120
  2. OXYCODONE HCL [Suspect]
     Indication: PAIN
     Dosage: 5 MG TID PO
     Route: 048

REACTIONS (3)
  - CHRONIC OBSTRUCTIVE PULMONARY DISEASE [None]
  - CONDITION AGGRAVATED [None]
  - MENTAL STATUS CHANGES [None]
